FAERS Safety Report 4349980-3 (Version None)
Quarter: 2004Q2

REPORT INFORMATION
  Report Type: 
  Country: None (occurrence: None)
  Receive Date: 20040428
  Receipt Date: 20040428
  Transmission Date: 20050107
  Serious: Yes (Other)
  Sender: FDA-Public Use
  Company Number: None

PATIENT
  Age: 32 Year
  Sex: Female
  Weight: 61.2356 kg

DRUGS (1)
  1. TEQUIN [Suspect]
     Indication: RESPIRATORY DISORDER
     Dosage: 400MG ONCE A DAY ORAL
     Route: 048
     Dates: start: 20040422, end: 20040429

REACTIONS (5)
  - BRADYPHRENIA [None]
  - DIZZINESS [None]
  - MEMORY IMPAIRMENT [None]
  - MUSCLE SPASMS [None]
  - PARAESTHESIA [None]
